APPROVED DRUG PRODUCT: DELSYM
Active Ingredient: DEXTROMETHORPHAN POLISTIREX
Strength: EQ 30MG HYDROBROMIDE/5ML
Dosage Form/Route: SUSPENSION, EXTENDED RELEASE;ORAL
Application: N018658 | Product #001
Applicant: RB HEALTH US LLC
Approved: Oct 8, 1982 | RLD: Yes | RS: Yes | Type: OTC